FAERS Safety Report 7808187-5 (Version None)
Quarter: 2011Q4

REPORT INFORMATION
  Report Type: 
  Country: None (occurrence: None)
  Receive Date: 20111011
  Receipt Date: 20111007
  Transmission Date: 20120403
  Serious: Yes (Other)
  Sender: FDA-Public Use
  Company Number: US-ABBOTT-11P-163-0862092-00

PATIENT
  Sex: Female
  Weight: 53.572 kg

DRUGS (3)
  1. HUMIRA [Suspect]
     Dates: start: 20100601
  2. HUMIRA [Suspect]
     Indication: RHEUMATOID ARTHRITIS
     Dates: start: 20040101, end: 20100101
  3. METHOTREXATE [Concomitant]
     Indication: RHEUMATOID ARTHRITIS

REACTIONS (3)
  - ABDOMINAL PAIN [None]
  - GROIN PAIN [None]
  - INGUINAL HERNIA [None]
